FAERS Safety Report 18298265 (Version 4)
Quarter: 2020Q4

REPORT INFORMATION
  Report Type: Spontaneous
  Country: US (occurrence: US)
  Receive Date: 20200922
  Receipt Date: 20201204
  Transmission Date: 20210113
  Serious: No
  Sender: FDA-Public Use
  Company Number: US-PFIZER INC-2020358101

PATIENT
  Age: 63 Year
  Sex: Male

DRUGS (1)
  1. EUCRISA [Suspect]
     Active Substance: CRISABOROLE
     Indication: DERMATITIS
     Dosage: APPLY TOPICALLY TO AFFECTED AREAS 2 TIMES DAILY AS NEEDED
     Route: 061

REACTIONS (2)
  - Off label use [Unknown]
  - Rash [Unknown]
